FAERS Safety Report 4596584-3 (Version None)
Quarter: 2005Q1

REPORT INFORMATION
  Report Type: 
  Country: None (occurrence: None)
  Receive Date: 20050302
  Receipt Date: 20050207
  Transmission Date: 20050727
  Serious: Yes (Death, Hospitalization, Other)
  Sender: FDA-Public Use
  Company Number: PHBS2005BE02117

PATIENT
  Age: 67 Year
  Sex: Female

DRUGS (20)
  1. AREDIA [Suspect]
     Indication: METASTASES TO BONE
     Dosage: 60 MG, QMO
     Route: 042
     Dates: start: 19971201
  2. AREDIA [Suspect]
     Dosage: 90 MG, QMO
     Route: 042
     Dates: start: 19980528
  3. AREDIA [Suspect]
     Dosage: 30 OR 60 MG/MONTH
     Route: 042
     Dates: start: 19980821
  4. AREDIA [Suspect]
     Dosage: 90 MG, QMO
     Route: 042
     Dates: start: 20000524
  5. AREDIA [Suspect]
     Dosage: 60 MG, QMO
     Dates: start: 20010131
  6. OXYGEN THERAPY [Concomitant]
     Route: 065
  7. ZOMETA [Suspect]
     Indication: METASTASES TO BONE
     Dosage: UNK, ONCE/SINGLE
     Route: 042
     Dates: start: 20020903, end: 20020903
  8. EXEMESTANE [Concomitant]
     Route: 065
     Dates: start: 19971201
  9. NOLVADEX [Concomitant]
     Route: 065
     Dates: start: 19991001, end: 20000601
  10. CAELYX [Concomitant]
     Dates: start: 20000601, end: 20001101
  11. SOLU-MEDROL [Concomitant]
     Dates: start: 20000601, end: 20001101
  12. FEMARA [Concomitant]
     Route: 065
     Dates: start: 20001124
  13. RADIOTHERAPY [Concomitant]
     Route: 065
     Dates: start: 20010401
  14. NAVELBINE [Concomitant]
     Route: 065
     Dates: start: 20020901, end: 20021201
  15. MESULID [Concomitant]
     Route: 065
  16. FELDENE [Concomitant]
     Route: 065
     Dates: start: 20010301
  17. TEGRETOL [Concomitant]
     Route: 065
     Dates: start: 20010301
  18. BROMAZEPAM [Concomitant]
     Route: 065
     Dates: start: 20010301
  19. DAFALGAN CODEINE [Concomitant]
     Route: 065
     Dates: start: 20010301
  20. MEDROL [Concomitant]
     Dosage: 16 MG/D
     Dates: start: 20011101

REACTIONS (20)
  - CONDITION AGGRAVATED [None]
  - ERYTHEMA [None]
  - LOCALISED INFECTION [None]
  - MALIGNANT NEOPLASM PROGRESSION [None]
  - MANDIBULECTOMY [None]
  - METASTASES TO BONE [None]
  - METASTASES TO LIVER [None]
  - MUCOSAL INFLAMMATION [None]
  - NEOPLASM RECURRENCE [None]
  - NEUTROPENIA [None]
  - OSTECTOMY [None]
  - OSTEONECROSIS [None]
  - OSTEOSYNTHESIS [None]
  - PAIN IN JAW [None]
  - RADIATION INJURY [None]
  - RADIOTHERAPY TO BONE [None]
  - RENAL FAILURE [None]
  - STREPTOCOCCAL INFECTION [None]
  - TOOTH EXTRACTION [None]
  - WOUND DEBRIDEMENT [None]
